FAERS Safety Report 6108015-2 (Version None)
Quarter: 2009Q1

REPORT INFORMATION
  Report Type: 
  Country: None (occurrence: None)
  Receive Date: 20090305
  Receipt Date: 20090305
  Transmission Date: 20090719
  Serious: Yes (Hospitalization)
  Sender: FDA-Public Use
  Company Number: None

PATIENT
  Age: 38 Year
  Sex: Female
  Weight: 97.5234 kg

DRUGS (10)
  1. PREDNISONE TAB [Suspect]
     Indication: IDIOPATHIC THROMBOCYTOPENIC PURPURA
     Dosage: 70MG DAILY PO
     Route: 048
     Dates: start: 20071101, end: 20090225
  2. DAPSONE [Suspect]
     Dosage: 100MG DAILY PO
     Route: 048
  3. LASIX [Concomitant]
  4. COUMADIN [Concomitant]
  5. METFORMIN HCL [Concomitant]
  6. LEVOTHYROXINE SODIUM [Concomitant]
  7. NEXIUM [Concomitant]
  8. DILTIAZEM [Concomitant]
  9. COLACE [Concomitant]
  10. CALCIUM CARBONATE [Concomitant]

REACTIONS (10)
  - CELLULITIS [None]
  - ERYTHEMA [None]
  - LUNG INFILTRATION [None]
  - NECROTISING FASCIITIS [None]
  - OEDEMA PERIPHERAL [None]
  - RASH PAPULAR [None]
  - RESPIRATORY ARREST [None]
  - SEPSIS [None]
  - SKIN LESION [None]
  - WOUND SECRETION [None]
